FAERS Safety Report 16103999 (Version 1)
Quarter: 2019Q1

REPORT INFORMATION
  Report Type: Spontaneous
  Country: US (occurrence: US)
  Receive Date: 20190322
  Receipt Date: 20190322
  Transmission Date: 20190418
  Serious: Yes (Other)
  Sender: FDA-Public Use
  Company Number: US-ABBVIE-19S-163-2713004-00

PATIENT
  Sex: Female

DRUGS (2)
  1. LUPRON [Suspect]
     Active Substance: LEUPROLIDE ACETATE
     Route: 050
  2. LUPRON [Suspect]
     Active Substance: LEUPROLIDE ACETATE
     Indication: ENDOMETRIOSIS
     Route: 050

REACTIONS (8)
  - Alopecia [Recovered/Resolved]
  - Memory impairment [Unknown]
  - Night sweats [Unknown]
  - Alopecia [Unknown]
  - Mood swings [Unknown]
  - Surgery [Unknown]
  - Constipation [Unknown]
  - Bone pain [Not Recovered/Not Resolved]
